FAERS Safety Report 10219862 (Version 2)
Quarter: 2014Q2

REPORT INFORMATION
  Report Type: Spontaneous
  Country: US (occurrence: US)
  Receive Date: 20140605
  Receipt Date: 20140612
  Transmission Date: 20141212
  Serious: Yes (Death)
  Sender: FDA-Public Use
  Company Number: US-PFIZER INC-2014150604

PATIENT
  Age: 47 Year
  Sex: Female

DRUGS (7)
  1. MORPHINE SULFATE [Suspect]
     Indication: BACK PAIN
     Dosage: UNK
     Dates: start: 20090527
  2. LORAZEPAM [Suspect]
     Indication: INSOMNIA
     Dosage: UNK
     Route: 048
     Dates: start: 20090923
  3. LORAZEPAM [Suspect]
     Indication: INSOMNIA
  4. HYDROCODONE [Suspect]
     Indication: BACK PAIN
     Dosage: UNK
     Dates: start: 20090527
  5. SOMA [Suspect]
     Indication: BACK PAIN
     Dosage: UNK
     Dates: start: 20090527
  6. NORCO [Suspect]
     Indication: BACK PAIN
     Dosage: UNK
     Dates: start: 20090527
  7. ZOLOFT [Concomitant]
     Dosage: UNK

REACTIONS (1)
  - Toxicity to various agents [Fatal]
